FAERS Safety Report 4916733-4 (Version None)
Quarter: 2006Q1

REPORT INFORMATION
  Report Type: 
  Country: None (occurrence: None)
  Receive Date: 20060220
  Receipt Date: 20060209
  Transmission Date: 20060701
  Serious: Yes (Other)
  Sender: FDA-Public Use
  Company Number: PHEH2006US01977

PATIENT
  Age: 14 Year
  Sex: Male

DRUGS (1)
  1. EXJADE [Suspect]
     Indication: SICKLE CELL ANAEMIA
     Dosage: QPM
     Route: 048

REACTIONS (3)
  - HAEMATEMESIS [None]
  - NAUSEA [None]
  - VOMITING [None]
